FAERS Safety Report 6782071-0 (Version None)
Quarter: 2010Q2

REPORT INFORMATION
  Report Type: 
  Country: None (occurrence: None)
  Receive Date: 20100621
  Receipt Date: 20100614
  Transmission Date: 20101027
  Serious: Yes (Other)
  Sender: FDA-Public Use
  Company Number: B0660637A

PATIENT

DRUGS (1)
  1. ROPINIROLE HYDROCHLORIDE [Suspect]
     Indication: RESTLESS LEGS SYNDROME
     Dosage: 4MG AT NIGHT
     Route: 065
     Dates: start: 20100101, end: 20100101

REACTIONS (2)
  - CONFUSIONAL STATE [None]
  - HALLUCINATION [None]
